FAERS Safety Report 8847307 (Version 1)
Quarter: 2012Q4

REPORT INFORMATION
  Report Type: 
  Country: US (occurrence: US)
  Receive Date: 20121018
  Receipt Date: 20121018
  Transmission Date: 20130627
  Serious: No
  Sender: FDA-Public Use
  Company Number: US-PFIZER INC-2012255046

PATIENT
  Age: 26 Year
  Sex: Female
  Weight: 65.31 kg

DRUGS (7)
  1. MEDROL [Suspect]
     Indication: BRONCHITIS
     Dosage: UNK, 6x/day
     Route: 048
     Dates: start: 20121004, end: 20121005
  2. MEDROL [Suspect]
     Dosage: UNK, 5x/day
     Route: 048
     Dates: start: 20121005, end: 20121006
  3. MEDROL [Suspect]
     Dosage: UNK, 4x/day
     Route: 048
     Dates: start: 20121006, end: 20121007
  4. MEDROL [Suspect]
     Dosage: UNK, 3x/day
     Route: 048
     Dates: start: 20121007, end: 20121008
  5. MEDROL [Suspect]
     Dosage: UNK, 2x/day
     Route: 048
     Dates: start: 20121008, end: 20121009
  6. MEDROL [Suspect]
     Dosage: UNK, 1x/day
     Route: 048
     Dates: start: 20121009, end: 20121009
  7. Z-PAK [Concomitant]
     Dosage: UNK

REACTIONS (4)
  - Myalgia [Unknown]
  - Pain [Unknown]
  - Arthralgia [Unknown]
  - Oedema peripheral [Unknown]
